FAERS Safety Report 6617782-0 (Version None)
Quarter: 2010Q1

REPORT INFORMATION
  Report Type: 
  Country: None (occurrence: None)
  Receive Date: 20100308
  Receipt Date: 20100302
  Transmission Date: 20100710
  Serious: Yes (Death)
  Sender: FDA-Public Use
  Company Number: PHHY2010CY11818

PATIENT
  Sex: Male

DRUGS (3)
  1. ZOLEDRONATE T29581++BM [Suspect]
     Indication: PROPHYLAXIS
     Dosage: 4 MG,
     Dates: start: 20090914, end: 20100120
  2. TAXOTERE [Concomitant]
     Dosage: UNK
     Dates: start: 20100113
  3. CHEMOTHERAPEUTICS NOS [Concomitant]

REACTIONS (1)
  - DEATH [None]
